FAERS Safety Report 8622560-7 (Version None)
Quarter: 2012Q3

REPORT INFORMATION
  Report Type: 
  Country: None (occurrence: None)
  Receive Date: 20120809
  Receipt Date: 20120725
  Transmission Date: 20120928
  Serious: Yes (Death)
  Sender: FDA-Public Use
  Company Number: 2012MA009145

PATIENT
  Age: 26 Year
  Sex: Male
  Weight: 73 kg

DRUGS (5)
  1. KADIAN [Suspect]
     Dosage: UNK
  2. OXYCODONE HCL [Suspect]
     Dosage: UNK
  3. ETHANOL [Suspect]
     Dosage: UNK
  4. CODEINE SULFATE [Suspect]
     Dosage: UNK
  5. HEROIN [Suspect]
     Dosage: UNK

REACTIONS (4)
  - INTENTIONAL DRUG MISUSE [None]
  - TOXICITY TO VARIOUS AGENTS [None]
  - DRUG ABUSE [None]
  - UNRESPONSIVE TO STIMULI [None]
